FAERS Safety Report 9914296 (Version 1)
Quarter: 2014Q1

REPORT INFORMATION
  Report Type: Spontaneous
  Country: US (occurrence: None)
  Receive Date: 20140219
  Receipt Date: 20140219
  Transmission Date: 20141002
  Serious: Yes (Congenital Anomaly)
  Sender: FDA-Public Use
  Company Number: None

PATIENT
  Sex: 0

DRUGS (1)
  1. BRETHINE/TERBUTALINE [Suspect]
     Indication: PREMATURE LABOUR
     Dosage: FOUR TIMES DAILY

REACTIONS (11)
  - Maternal exposure during pregnancy [None]
  - Maternal drugs affecting foetus [None]
  - Asperger^s disorder [None]
  - Convulsion [None]
  - Mental impairment [None]
  - Premature labour [None]
  - Pregnancy [None]
  - Premature baby [None]
  - Epilepsy [None]
  - Affective disorder [None]
  - Attention deficit/hyperactivity disorder [None]
